FAERS Safety Report 14650368 (Version 1)
Quarter: 2018Q1

REPORT INFORMATION
  Report Type: Spontaneous
  Country: NL (occurrence: NL)
  Receive Date: 20180316
  Receipt Date: 20180316
  Transmission Date: 20180509
  Serious: Yes (Hospitalization)
  Sender: FDA-Public Use
  Company Number: NL-TEVA-2018-NL-868187

PATIENT
  Age: 74 Year
  Sex: Male

DRUGS (1)
  1. METHOTREXAAT TAB 2,5 MG [Suspect]
     Active Substance: METHOTREXATE SODIUM
     Indication: RHEUMATOID ARTHRITIS
     Dosage: 4 TAB PER WEEK

REACTIONS (2)
  - Chronic obstructive pulmonary disease [Unknown]
  - Lung disorder [Unknown]
